FAERS Safety Report 6273825-8 (Version None)
Quarter: 2009Q3

REPORT INFORMATION
  Report Type: 
  Country: None (occurrence: None)
  Receive Date: 20090715
  Receipt Date: 20090701
  Transmission Date: 20100115
  Serious: Yes (Other)
  Sender: FDA-Public Use
  Company Number: 310013M09FRA

PATIENT
  Age: 36 Year
  Sex: Female

DRUGS (5)
  1. GONAL-F [Suspect]
     Indication: IN VITRO FERTILISATION
     Dates: start: 20081201, end: 20090108
  2. OVITRELLE (CHORIOGONADOTROPIN ALFA) [Suspect]
     Indication: IN VITRO FERTILISATION
     Dates: start: 20090109, end: 20090113
  3. PENTASA [Concomitant]
  4. LEVOTHYROXINE SODIUM [Concomitant]
  5. DECAPEPTYL (TRIPTORELIN ACETATE) [Concomitant]

REACTIONS (1)
  - DEMYELINATION [None]
